FAERS Safety Report 10192518 (Version 2)
Quarter: 2014Q2

REPORT INFORMATION
  Report Type: Report from Study
  Country: IN (occurrence: IN)
  Receive Date: 20140523
  Receipt Date: 20140527
  Transmission Date: 20141212
  Serious: Yes (Death, Life-Threatening, Hospitalization)
  Sender: FDA-Public Use
  Company Number: IN-CUBIST PHARMACEUTICAL, INC.-2014CBST000729

PATIENT
  Sex: 0

DRUGS (4)
  1. CUBICIN [Suspect]
     Indication: STAPHYLOCOCCAL BACTERAEMIA
     Dosage: 6 MG/KG, Q48H
     Route: 042
  2. CUBICIN [Suspect]
     Indication: STAPHYLOCOCCAL SEPSIS
  3. IMIPENEM [Concomitant]
     Indication: PRODUCT USED FOR UNKNOWN INDICATION
     Dosage: UNK UNK, UNK
     Route: 065
  4. TIGECYCLINE [Concomitant]
     Indication: PRODUCT USED FOR UNKNOWN INDICATION
     Dosage: UNK UNK, UNK
     Route: 065

REACTIONS (2)
  - Rhabdomyolysis [Fatal]
  - Drug ineffective for unapproved indication [Unknown]
